APPROVED DRUG PRODUCT: OFLOXACIN
Active Ingredient: OFLOXACIN
Strength: 0.3%
Dosage Form/Route: SOLUTION/DROPS;OPHTHALMIC
Application: A215886 | Product #001 | TE Code: AT
Applicant: MANKIND PHARMA LTD
Approved: Nov 23, 2022 | RLD: No | RS: No | Type: RX